FAERS Safety Report 4829835-8 (Version None)
Quarter: 2005Q4

REPORT INFORMATION
  Report Type: 
  Country: None (occurrence: None)
  Receive Date: 20051115
  Receipt Date: 20051101
  Transmission Date: 20060501
  Serious: Yes (Hospitalization)
  Sender: FDA-Public Use
  Company Number: 2005BI020069

PATIENT
  Age: 47 Year
  Sex: Female

DRUGS (1)
  1. AVONEX [Suspect]
     Indication: MULTIPLE SCLEROSIS
     Dosage: 30 UG; QW; IM
     Route: 030
     Dates: start: 20040402

REACTIONS (5)
  - ABDOMINAL PAIN [None]
  - CARTILAGE INJURY [None]
  - LIGAMENT RUPTURE [None]
  - LIMB INJURY [None]
  - UTERINE ENLARGEMENT [None]
